FAERS Safety Report 9418722 (Version 3)
Quarter: 2017Q3

REPORT INFORMATION
  Report Type: Report from Study
  Country: JP (occurrence: JP)
  Receive Date: 20130725
  Receipt Date: 20170831
  Transmission Date: 20171128
  Serious: Yes (Hospitalization)
  Sender: FDA-Public Use
  Company Number: JP-CELGENEUS-087-50794-12110510

PATIENT
  Age: 78 Year
  Sex: Male
  Weight: 44 kg

DRUGS (63)
  1. VIDAZA [Suspect]
     Active Substance: AZACITIDINE
     Dosage: 85 MILLIGRAM
     Route: 041
     Dates: start: 20140218, end: 20140226
  2. VIDAZA [Suspect]
     Active Substance: AZACITIDINE
     Dosage: 85 MILLIGRAM
     Route: 041
     Dates: start: 20140422, end: 20140430
  3. KYTRIL [Concomitant]
     Active Substance: GRANISETRON HYDROCHLORIDE
     Route: 065
     Dates: start: 20120702, end: 20120706
  4. MAXIPIME [Concomitant]
     Active Substance: CEFEPIME HYDROCHLORIDE
     Route: 065
     Dates: start: 20120918, end: 20120926
  5. MAXIPIME [Concomitant]
     Active Substance: CEFEPIME HYDROCHLORIDE
     Route: 065
     Dates: start: 20140913, end: 20140919
  6. PREDONINE [Concomitant]
     Active Substance: PREDNISOLONE
     Route: 065
     Dates: start: 20121102, end: 20121115
  7. GASTER [Concomitant]
     Active Substance: FAMOTIDINE
     Indication: PRODUCT USED FOR UNKNOWN INDICATION
     Route: 065
     Dates: start: 20120928, end: 20121226
  8. NAPA [Concomitant]
     Active Substance: ACETAMINOPHEN
     Route: 065
     Dates: start: 20141114, end: 20141117
  9. TAMIFLU [Concomitant]
     Active Substance: OSELTAMIVIR PHOSPHATE
     Indication: PRODUCT USED FOR UNKNOWN INDICATION
     Route: 065
     Dates: start: 20130308, end: 20130312
  10. VIDAZA [Suspect]
     Active Substance: AZACITIDINE
     Indication: MYELODYSPLASTIC SYNDROME
     Dosage: 75 MILLIGRAM
     Route: 041
     Dates: start: 20120524, end: 20120601
  11. VIDAZA [Suspect]
     Active Substance: AZACITIDINE
     Dosage: 80 MILLIGRAM
     Route: 041
     Dates: start: 20121011, end: 20121012
  12. VIDAZA [Suspect]
     Active Substance: AZACITIDINE
     Dosage: 85 MILLIGRAM
     Route: 041
     Dates: start: 20140806, end: 20140814
  13. MAXIPIME [Concomitant]
     Active Substance: CEFEPIME HYDROCHLORIDE
     Indication: PRODUCT USED FOR UNKNOWN INDICATION
     Route: 065
     Dates: start: 20120714, end: 20120724
  14. MEROPEN [Concomitant]
     Active Substance: MEROPENEM
     Route: 065
     Dates: start: 20130308, end: 20130308
  15. VIDAZA [Suspect]
     Active Substance: AZACITIDINE
     Dosage: 75 MILLIGRAM
     Route: 041
     Dates: start: 20120628, end: 20120706
  16. VIDAZA [Suspect]
     Active Substance: AZACITIDINE
     Dosage: 80 MILLIGRAM
     Route: 041
     Dates: start: 20120904, end: 20120912
  17. VIDAZA [Suspect]
     Active Substance: AZACITIDINE
     Dosage: 80 MILLIGRAM
     Route: 041
     Dates: start: 20130415, end: 20130423
  18. VIDAZA [Suspect]
     Active Substance: AZACITIDINE
     Dosage: 90 MILLIGRAM
     Route: 041
     Dates: start: 20140527, end: 20140604
  19. HERBESSER [Concomitant]
     Active Substance: DILTIAZEM HYDROCHLORIDE
     Indication: PRODUCT USED FOR UNKNOWN INDICATION
     Route: 065
  20. MAGMITT [Concomitant]
     Active Substance: MAGNESIUM OXIDE
     Indication: PRODUCT USED FOR UNKNOWN INDICATION
     Route: 065
     Dates: start: 20120525
  21. PREDONINE [Concomitant]
     Active Substance: PREDNISOLONE
     Route: 065
     Dates: start: 20121116, end: 20121213
  22. BIOFERMIN [Concomitant]
     Active Substance: BACILLUS SUBTILIS\LACTOBACILLUS ACIDOPHILUS\STREPTOCOCCUS FAECAIS
     Indication: PRODUCT USED FOR UNKNOWN INDICATION
     Route: 065
     Dates: start: 20130528, end: 20130602
  23. BIO-THREE [Concomitant]
     Active Substance: HERBALS
     Indication: PRODUCT USED FOR UNKNOWN INDICATION
     Route: 065
     Dates: start: 20140923, end: 20140925
  24. KYTRIL [Concomitant]
     Active Substance: GRANISETRON HYDROCHLORIDE
     Route: 065
     Dates: start: 20120528, end: 20120601
  25. KYTRIL [Concomitant]
     Active Substance: GRANISETRON HYDROCHLORIDE
     Route: 065
     Dates: start: 20120628, end: 20120629
  26. CRAVIT [Concomitant]
     Active Substance: LEVOFLOXACIN
     Indication: PRODUCT USED FOR UNKNOWN INDICATION
     Route: 065
     Dates: start: 20120823, end: 20141113
  27. PREDONINE [Concomitant]
     Active Substance: PREDNISOLONE
     Indication: PRODUCT USED FOR UNKNOWN INDICATION
     Route: 065
     Dates: start: 20120928, end: 20121004
  28. MEROPEN [Concomitant]
     Active Substance: MEROPENEM
     Indication: PRODUCT USED FOR UNKNOWN INDICATION
     Route: 065
     Dates: start: 20120927, end: 20121004
  29. MICAFUNGIN SODIUM [Concomitant]
     Active Substance: MICAFUNGIN SODIUM
     Route: 065
     Dates: start: 20141114, end: 20141121
  30. VIDAZA [Suspect]
     Active Substance: AZACITIDINE
     Dosage: 80 MILLIGRAM
     Route: 041
     Dates: start: 20121129, end: 20121207
  31. VIDAZA [Suspect]
     Active Substance: AZACITIDINE
     Dosage: 80 MILLIGRAM
     Route: 041
     Dates: start: 20130117, end: 20130125
  32. VIDAZA [Suspect]
     Active Substance: AZACITIDINE
     Dosage: 80 MILLIGRAM
     Route: 041
     Dates: start: 20130926, end: 20131004
  33. VIDAZA [Suspect]
     Active Substance: AZACITIDINE
     Dosage: 85 MILLIGRAM
     Route: 041
     Dates: start: 20140318, end: 20140326
  34. VIDAZA [Suspect]
     Active Substance: AZACITIDINE
     Dosage: 85 MILLIGRAM
     Route: 041
     Dates: start: 20140910, end: 20140912
  35. BROTIZOLAM [Concomitant]
     Active Substance: BROTIZOLAM
     Indication: PRODUCT USED FOR UNKNOWN INDICATION
     Route: 065
  36. PREDONINE [Concomitant]
     Active Substance: PREDNISOLONE
     Route: 065
     Dates: start: 20121017, end: 20121101
  37. NAPA [Concomitant]
     Active Substance: ACETAMINOPHEN
     Route: 065
     Dates: start: 20140915, end: 20140916
  38. MICAFUNGIN SODIUM [Concomitant]
     Active Substance: MICAFUNGIN SODIUM
     Indication: PRODUCT USED FOR UNKNOWN INDICATION
     Route: 065
     Dates: start: 20140916, end: 20140925
  39. VIDAZA [Suspect]
     Active Substance: AZACITIDINE
     Dosage: 80 MILLIGRAM
     Route: 041
     Dates: start: 20120730, end: 20120807
  40. VIDAZA [Suspect]
     Active Substance: AZACITIDINE
     Dosage: 80 MILLIGRAM
     Route: 041
     Dates: start: 20130531, end: 20130607
  41. VIDAZA [Suspect]
     Active Substance: AZACITIDINE
     Dosage: 80 MILLIGRAM
     Route: 041
     Dates: start: 20130709, end: 20130718
  42. KYTRIL [Concomitant]
     Active Substance: GRANISETRON HYDROCHLORIDE
     Indication: PRODUCT USED FOR UNKNOWN INDICATION
     Route: 065
     Dates: start: 20120524, end: 20120525
  43. FLUCONAZOLE. [Concomitant]
     Active Substance: FLUCONAZOLE
     Indication: PRODUCT USED FOR UNKNOWN INDICATION
     Route: 065
     Dates: start: 20120706, end: 20140916
  44. FLUCONAZOLE. [Concomitant]
     Active Substance: FLUCONAZOLE
     Route: 065
     Dates: start: 20140926, end: 20141112
  45. MAXIPIME [Concomitant]
     Active Substance: CEFEPIME HYDROCHLORIDE
     Route: 065
     Dates: start: 20130307, end: 20130308
  46. NAPA [Concomitant]
     Active Substance: ACETAMINOPHEN
     Indication: PRODUCT USED FOR UNKNOWN INDICATION
     Route: 065
     Dates: start: 20130307, end: 20130308
  47. MUCODYNE [Concomitant]
     Active Substance: CARBOCYSTEINE
     Indication: PRODUCT USED FOR UNKNOWN INDICATION
     Route: 065
     Dates: start: 20130314
  48. FLOMAX [Concomitant]
     Active Substance: TAMSULOSIN HYDROCHLORIDE
     Indication: PRODUCT USED FOR UNKNOWN INDICATION
     Route: 065
     Dates: start: 20130528, end: 20130602
  49. VIDAZA [Suspect]
     Active Substance: AZACITIDINE
     Dosage: 80 MILLIGRAM
     Route: 041
     Dates: start: 20131106, end: 20131114
  50. VIDAZA [Suspect]
     Active Substance: AZACITIDINE
     Dosage: 85 MILLIGRAM
     Route: 041
     Dates: start: 20140702, end: 20140710
  51. VIDAZA [Suspect]
     Active Substance: AZACITIDINE
     Dosage: 85 MILLIGRAM
     Route: 041
     Dates: start: 20141015, end: 20141023
  52. HARNAL [Concomitant]
     Active Substance: TAMSULOSIN HYDROCHLORIDE
     Indication: PRODUCT USED FOR UNKNOWN INDICATION
     Route: 065
  53. CRAVIT [Concomitant]
     Active Substance: LEVOFLOXACIN
     Route: 065
     Dates: start: 20141122
  54. BIOFERMIN R [Concomitant]
     Active Substance: BACILLUS SUBTILIS\LACTOBACILLUS ACIDOPHILUS\STREPTOCOCCUS FAECAIS
     Indication: PRODUCT USED FOR UNKNOWN INDICATION
     Route: 065
     Dates: start: 20141114
  55. VIDAZA [Suspect]
     Active Substance: AZACITIDINE
     Dosage: 80 MILLIGRAM
     Route: 041
     Dates: start: 20130301, end: 20130308
  56. VIDAZA [Suspect]
     Active Substance: AZACITIDINE
     Dosage: 80 MILLIGRAM
     Route: 041
     Dates: start: 20130822, end: 20130828
  57. VIDAZA [Suspect]
     Active Substance: AZACITIDINE
     Dosage: 85 MILLIGRAM
     Route: 041
     Dates: start: 20131210, end: 20131218
  58. VIDAZA [Suspect]
     Active Substance: AZACITIDINE
     Dosage: 85 MILLIGRAM
     Route: 041
     Dates: start: 20140115, end: 20140123
  59. PREDONINE [Concomitant]
     Active Substance: PREDNISOLONE
     Route: 065
     Dates: start: 20121005, end: 20121016
  60. PREDONINE [Concomitant]
     Active Substance: PREDNISOLONE
     Route: 065
     Dates: start: 20121214, end: 20121226
  61. MEROPEN [Concomitant]
     Active Substance: MEROPENEM
     Route: 065
     Dates: start: 20141114, end: 20141121
  62. PROMAC [Concomitant]
     Active Substance: NITROFURANTOIN
     Indication: PRODUCT USED FOR UNKNOWN INDICATION
     Route: 065
     Dates: start: 20130318
  63. LOPERAMIDE HYDROCHLORIDE. [Concomitant]
     Active Substance: LOPERAMIDE HYDROCHLORIDE
     Indication: PRODUCT USED FOR UNKNOWN INDICATION
     Route: 065
     Dates: start: 20140923

REACTIONS (11)
  - Pneumonia [Recovering/Resolving]
  - Injection site pain [Recovered/Resolved]
  - Pneumonia [Recovered/Resolved]
  - Pneumonia [Recovered/Resolved]
  - Dysgeusia [Unknown]
  - Constipation [Recovered/Resolved]
  - Diarrhoea [Recovered/Resolved]
  - Parophthalmia [Recovered/Resolved]
  - Pneumonia [Recovering/Resolving]
  - Pneumonia [Recovered/Resolved]
  - Sepsis [Recovered/Resolved]

NARRATIVE: CASE EVENT DATE: 20120525
